FAERS Safety Report 15370661 (Version 3)
Quarter: 2018Q4

REPORT INFORMATION
  Report Type: Spontaneous
  Country: US (occurrence: US)
  Receive Date: 20180911
  Receipt Date: 20181123
  Transmission Date: 20190204
  Serious: Yes (Life-Threatening, Hospitalization, Other)
  Sender: FDA-Public Use
  Company Number: US-PFIZER INC-2018364986

PATIENT
  Age: 56 Year
  Sex: Male
  Weight: 83.91 kg

DRUGS (5)
  1. GEODON [Suspect]
     Active Substance: ZIPRASIDONE HYDROCHLORIDE\ZIPRASIDONE MESYLATE
     Dosage: 40 MG, 1X/DAY [DURING THE 4 YEARS]
  2. GEODON [Suspect]
     Active Substance: ZIPRASIDONE HYDROCHLORIDE\ZIPRASIDONE MESYLATE
     Dosage: 10 MG, 2X/DAY (EVERY 12 HOURS)
     Dates: start: 201001
  3. GEODON [Suspect]
     Active Substance: ZIPRASIDONE HYDROCHLORIDE\ZIPRASIDONE MESYLATE
     Dosage: 10 MG, DAILY
  4. GEODON [Suspect]
     Active Substance: ZIPRASIDONE HYDROCHLORIDE\ZIPRASIDONE MESYLATE
     Dosage: 60 MG, 1X/DAY [DURING THE 4 YEARS]
  5. GEODON [Suspect]
     Active Substance: ZIPRASIDONE HYDROCHLORIDE\ZIPRASIDONE MESYLATE
     Indication: ANXIETY
     Dosage: 20 MG, 1X/DAY  [DURING THE 4 YEARS]
     Dates: start: 2006

REACTIONS (26)
  - Neuropathy peripheral [Unknown]
  - Malignant hypertension [Unknown]
  - Oral infection [Unknown]
  - Disturbance in attention [Unknown]
  - Anaphylactic reaction [Unknown]
  - Cerebrovascular accident [Unknown]
  - Dyspnoea [Unknown]
  - Food poisoning [Recovering/Resolving]
  - Tooth infection [Unknown]
  - Stress [Unknown]
  - Brain injury [Unknown]
  - Impaired driving ability [Unknown]
  - Partial seizures [Unknown]
  - Cataplexy [Unknown]
  - Withdrawal syndrome [Unknown]
  - Panic attack [Unknown]
  - Product use in unapproved indication [Unknown]
  - Road traffic accident [Unknown]
  - Cognitive disorder [Unknown]
  - Loss of consciousness [Unknown]
  - Narcolepsy [Unknown]
  - Immune system disorder [Unknown]
  - Loss of personal independence in daily activities [Unknown]
  - Rash [Unknown]
  - Neuroleptic malignant syndrome [Unknown]
  - Paradoxical drug reaction [Unknown]

NARRATIVE: CASE EVENT DATE: 2006
